FAERS Safety Report 6769183-2 (Version None)
Quarter: 2010Q2

REPORT INFORMATION
  Report Type: 
  Country: None (occurrence: None)
  Receive Date: 20100520
  Receipt Date: 20090317
  Transmission Date: 20101027
  Serious: Yes (Other)
  Sender: FDA-Public Use
  Company Number: 2009185025

PATIENT
  Age: 59 Year
  Sex: Female
  Weight: 57 kg

DRUGS (6)
  1. PROVERA [Suspect]
     Indication: MENOPAUSE
  2. PREMARIN [Suspect]
     Indication: MENOPAUSE
     Dates: start: 19850901, end: 20000101
  3. PREMPRO [Suspect]
     Indication: MENOPAUSE
     Dates: start: 19960601, end: 20020901
  4. PROMETRIUM [Suspect]
     Indication: MENOPAUSE
     Dates: start: 20000101, end: 20020101
  5. TOPROL-XL [Concomitant]
  6. VYTORIN [Concomitant]

REACTIONS (1)
  - BREAST CANCER [None]
